FAERS Safety Report 16640232 (Version 9)
Quarter: 2020Q4

REPORT INFORMATION
  Report Type: Report from Study
  Country: US (occurrence: US)
  Receive Date: 20190728
  Receipt Date: 20201124
  Transmission Date: 20210113
  Serious: Yes (Other)
  Sender: FDA-Public Use
  Company Number: PHEH2019US031114

PATIENT
  Sex: Female

DRUGS (4)
  1. AFINITOR [Suspect]
     Active Substance: EVEROLIMUS
     Indication: TUBEROUS SCLEROSIS COMPLEX
     Dosage: 5 MG, QD
     Route: 048
     Dates: start: 20190520
  2. AFINITOR [Suspect]
     Active Substance: EVEROLIMUS
     Dosage: 10 MG, QD
     Route: 048
     Dates: start: 20190603
  3. AFINITOR [Suspect]
     Active Substance: EVEROLIMUS
     Indication: ASTROCYTOMA, LOW GRADE
     Dosage: 10 MG, UNK
     Route: 048
  4. GABAPENTIN. [Concomitant]
     Active Substance: GABAPENTIN
     Indication: PRODUCT USED FOR UNKNOWN INDICATION
     Dosage: UNK
     Route: 065

REACTIONS (11)
  - Brain neoplasm [Recovering/Resolving]
  - Acne [Unknown]
  - Dehydration [Recovered/Resolved with Sequelae]
  - Influenza like illness [Unknown]
  - Headache [Unknown]
  - Blood cholesterol increased [Unknown]
  - Hypotension [Recovered/Resolved with Sequelae]
  - Renal neoplasm [Recovering/Resolving]
  - Seizure [Unknown]
  - Nasal septum deviation [Unknown]
  - Stomatitis [Unknown]
